FAERS Safety Report 6087889-8 (Version None)
Quarter: 2009Q1

REPORT INFORMATION
  Report Type: 
  Country: None (occurrence: None)
  Receive Date: 20090223
  Receipt Date: 20090219
  Transmission Date: 20090719
  Serious: No
  Sender: FDA-Public Use
  Company Number: US-B.I. PHARMACEUTICALS,INC./RIDGEFIELD-2008-BP-16223BP

PATIENT
  Sex: Female

DRUGS (3)
  1. SPIRIVA [Suspect]
     Indication: CHRONIC OBSTRUCTIVE PULMONARY DISEASE
     Dosage: 18MCG
     Route: 055
     Dates: start: 20071001
  2. NEBULIZER [Concomitant]
  3. PREDNISONE TAB [Concomitant]

REACTIONS (3)
  - DRUG INEFFECTIVE [None]
  - EYE DISORDER [None]
  - VISUAL IMPAIRMENT [None]
